FAERS Safety Report 16509544 (Version 1)
Quarter: 2019Q3

REPORT INFORMATION
  Report Type: Spontaneous
  Country: US (occurrence: US)
  Receive Date: 20190701
  Receipt Date: 20190701
  Transmission Date: 20191004
  Serious: No
  Sender: FDA-Public Use
  Company Number: US-GALDERMA-US19007539

PATIENT
  Age: 27 Year
  Sex: Male

DRUGS (5)
  1. PROACTIV MD DEEP CLEANSING FACE WASH [Concomitant]
     Active Substance: COSMETICS
     Indication: SENSITIVE SKIN
     Route: 061
     Dates: start: 20181109, end: 20181201
  2. PROACTIV GREEN TEA MOISTURIZER [Concomitant]
     Active Substance: COSMETICS
     Indication: SENSITIVE SKIN
     Route: 061
     Dates: start: 20181109, end: 20181201
  3. PROACTIV MD DAILY OIL CONTROL SPF 30 [Suspect]
     Active Substance: AVOBENZONE\OCTISALATE\OCTOCRYLENE
     Indication: SENSITIVE SKIN
     Route: 061
     Dates: start: 20181109, end: 20181201
  4. PROACTIV SOLUTION BLACKHEAD DISSOLVING [Concomitant]
     Active Substance: SALICYLIC ACID
     Indication: SENSITIVE SKIN
     Route: 061
     Dates: start: 20181109, end: 20181201
  5. PROACTIV MD ADAPALENE ACNE TREATMENT [Suspect]
     Active Substance: ADAPALENE
     Indication: SENSITIVE SKIN
     Dosage: 0.1%
     Route: 061
     Dates: start: 20181109, end: 20181201

REACTIONS (4)
  - Rash papular [Recovering/Resolving]
  - Product use in unapproved indication [Recovered/Resolved]
  - Acne [Recovering/Resolving]
  - Dry skin [Recovering/Resolving]

NARRATIVE: CASE EVENT DATE: 20181109
